FAERS Safety Report 13687153 (Version 2)
Quarter: 2018Q1

REPORT INFORMATION
  Report Type: Spontaneous
  Country: US (occurrence: US)
  Receive Date: 20170623
  Receipt Date: 20180126
  Transmission Date: 20180508
  Serious: No
  Sender: FDA-Public Use
  Company Number: US-009507513-1706USA006323

PATIENT
  Sex: Female
  Weight: 161 kg

DRUGS (2)
  1. NEXPLANON [Suspect]
     Active Substance: ETONOGESTREL
     Indication: CONTRACEPTION
     Dosage: 1 ROD, UNK
     Route: 059
     Dates: end: 20170421
  2. NEXPLANON [Suspect]
     Active Substance: ETONOGESTREL
     Dosage: 1 ROD, ONCE
     Route: 058
     Dates: start: 20170421, end: 2017

REACTIONS (4)
  - Muscle spasms [Unknown]
  - Feeling abnormal [Unknown]
  - Complication associated with device [Unknown]
  - Device expulsion [Unknown]

NARRATIVE: CASE EVENT DATE: 2017
